FAERS Safety Report 10403314 (Version 1)
Quarter: 2014Q3

REPORT INFORMATION
  Report Type: Spontaneous
  Country: RU (occurrence: RU)
  Receive Date: 20140822
  Receipt Date: 20140822
  Transmission Date: 20150326
  Serious: Yes (Other)
  Sender: FDA-Public Use
  Company Number: RU-TEVA-502240ISR

PATIENT
  Age: 3 Month
  Sex: Female

DRUGS (1)
  1. FINLEPSIN [Suspect]
     Active Substance: CARBAMAZEPINE
     Indication: EPILEPSY

REACTIONS (2)
  - Drug ineffective [Not Recovered/Not Resolved]
  - Epilepsy [Not Recovered/Not Resolved]
